FAERS Safety Report 6531412-8 (Version None)
Quarter: 2010Q1

REPORT INFORMATION
  Report Type: 
  Country: None (occurrence: None)
  Receive Date: 20100108
  Receipt Date: 20091103
  Transmission Date: 20100710
  Serious: No
  Sender: FDA-Public Use
  Company Number: A0816316A

PATIENT
  Age: 58 Year
  Sex: Female

DRUGS (1)
  1. TYKERB [Suspect]
     Indication: DRUG USE FOR UNKNOWN INDICATION
     Dosage: 5TAB PER DAY
     Dates: start: 20091026

REACTIONS (5)
  - COUGH [None]
  - DIARRHOEA [None]
  - DRY SKIN [None]
  - DYSPNOEA EXERTIONAL [None]
  - FATIGUE [None]
